FAERS Safety Report 16324487 (Version 2)
Quarter: 2019Q2

REPORT INFORMATION
  Report Type: Spontaneous
  Country: FR (occurrence: FR)
  Receive Date: 20190517
  Receipt Date: 20190614
  Transmission Date: 20190711
  Serious: Yes (Hospitalization)
  Sender: FDA-Public Use
  Company Number: FR-TEVA-2019-FR-1052650

PATIENT
  Age: 39 Year
  Sex: Female

DRUGS (3)
  1. SUPPONERYL [Concomitant]
     Indication: SEDATION
     Dosage: 1 DOSAGE FORMS DAILY;
     Route: 065
     Dates: start: 196303
  2. ESTRADIOL. [Suspect]
     Active Substance: ESTRADIOL
     Indication: AMENORRHOEA
     Route: 065
     Dates: start: 1963
  3. PROLUTON [Suspect]
     Active Substance: HYDROXYPROGESTERONE CAPROATE
     Indication: AMENORRHOEA
     Route: 065
     Dates: start: 1963

REACTIONS (1)
  - Acquired porphyria [Recovering/Resolving]

NARRATIVE: CASE EVENT DATE: 196305
